FAERS Safety Report 6760657-7 (Version None)
Quarter: 2010Q2

REPORT INFORMATION
  Report Type: 
  Country: None (occurrence: None)
  Receive Date: 20100608
  Receipt Date: 20100526
  Transmission Date: 20101027
  Serious: Yes (Other)
  Sender: FDA-Public Use
  Company Number: US-PFIZER INC-2010050614

PATIENT
  Sex: Male
  Weight: 97.959 kg

DRUGS (9)
  1. PREGABALIN [Suspect]
     Indication: RESTLESS LEGS SYNDROME
     Dosage: 300 MG, 1X/DAY
     Route: 048
     Dates: start: 20090827, end: 20100418
  2. LOVAZA [Concomitant]
     Indication: PROPHYLAXIS
     Dosage: 1 TAB, QD
     Route: 048
     Dates: start: 19940101
  3. SAW PALMETTO [Concomitant]
     Indication: PROSTATE EXAMINATION
     Dosage: 450 MG, 1X/DAY
     Route: 048
     Dates: start: 19840101
  4. TYLENOL SINUS [Concomitant]
     Indication: NASOPHARYNGITIS
     Dosage: 2 TAB, PRN
     Route: 048
     Dates: start: 20100315
  5. GLUCOSAMINE [Concomitant]
     Indication: PROPHYLAXIS
     Dosage: 1 TAB, QD
     Route: 048
     Dates: start: 20100316
  6. PRAVACHOL [Concomitant]
     Dosage: UNK
     Route: 048
     Dates: start: 20100126, end: 20100415
  7. LISINOPRIL [Concomitant]
     Dosage: UNK
     Route: 048
     Dates: start: 20100128
  8. FLUOXETINE [Concomitant]
     Dosage: UNK
     Route: 048
     Dates: start: 20100128
  9. TESTOSTERONE CIPIONATE [Concomitant]
     Dosage: UNK
     Route: 030
     Dates: start: 20100302

REACTIONS (1)
  - MENTAL STATUS CHANGES [None]
